FAERS Safety Report 5344373-4 (Version None)
Quarter: 2007Q2

REPORT INFORMATION
  Report Type: 
  Country: None (occurrence: None)
  Receive Date: 20070604
  Receipt Date: 20070531
  Transmission Date: 20071010
  Serious: Yes (Death, Disabling)
  Sender: FDA-Public Use
  Company Number: US-ASTRAZENECA-2006UW21608

PATIENT
  Age: 933 Month
  Sex: Female
  Weight: 63.6 kg

DRUGS (3)
  1. SEROQUEL [Suspect]
     Indication: ABNORMAL BEHAVIOUR
     Dosage: 25 MG - 75 MG
     Route: 048
     Dates: start: 20040501, end: 20050311
  2. SEROQUEL [Suspect]
     Route: 048
  3. ZYPREXA [Concomitant]

REACTIONS (2)
  - DEATH [None]
  - DIABETES MELLITUS [None]
